FAERS Safety Report 25871659 (Version 1)
Quarter: 2025Q4

REPORT INFORMATION
  Report Type: Spontaneous
  Country: US (occurrence: US)
  Receive Date: 20251001
  Receipt Date: 20251001
  Transmission Date: 20260117
  Serious: Yes (Hospitalization)
  Sender: RECKITT BENCKISER
  Company Number: US-Indivior Limited-INDV-165509-2025

PATIENT
  Age: 42 Year
  Sex: Female

DRUGS (3)
  1. SUBLOCADE [Suspect]
     Active Substance: BUPRENORPHINE
     Indication: Product used for unknown indication
     Dosage: 300 MILLIGRAM, QMO
     Route: 065
     Dates: start: 20250530
  2. SUBLOCADE [Suspect]
     Active Substance: BUPRENORPHINE
  3. LIDOCAINE [Suspect]
     Active Substance: LIDOCAINE
     Indication: Product used for unknown indication
     Dosage: 1%500
     Route: 065
     Dates: start: 20250530

REACTIONS (2)
  - Injection site pain [Recovering/Resolving]
  - Injection site erythema [Recovering/Resolving]

NARRATIVE: CASE EVENT DATE: 20250530
